FAERS Safety Report 23152833 (Version 1)
Quarter: 2023Q4

REPORT INFORMATION
  Report Type: Spontaneous
  Country: US (occurrence: US)
  Receive Date: 20231107
  Receipt Date: 20231107
  Transmission Date: 20240110
  Serious: Yes (Other)
  Sender: FDA-Public Use
  Company Number: US-SA-SAC20231030001821

PATIENT
  Age: 81 Year
  Sex: Female

DRUGS (1)
  1. DUPIXENT [Suspect]
     Active Substance: DUPILUMAB
     Indication: Skin disorder
     Dosage: 300MG QOW
     Route: 058

REACTIONS (4)
  - Ocular vasculitis [Unknown]
  - Visual impairment [Unknown]
  - Upper limb fracture [Unknown]
  - Product use in unapproved indication [Unknown]

NARRATIVE: CASE EVENT DATE: 20230101
